FAERS Safety Report 9045383 (Version 1)
Quarter: 2013Q1

REPORT INFORMATION
  Report Type: Report from Study
  Country: US (occurrence: US)
  Receive Date: 20130131
  Receipt Date: 20130131
  Transmission Date: 20140127
  Serious: No
  Sender: FDA-Public Use
  Company Number: US-ABBOTT-12P-163-1003655-00

PATIENT
  Age: 39 Year
  Sex: Male

DRUGS (6)
  1. HUMIRA [Suspect]
     Indication: CROHN^S DISEASE
     Dates: start: 20120806
  2. LEXAPRO [Concomitant]
     Indication: BIPOLAR DISORDER
     Route: 048
  3. LAMICTAL [Concomitant]
     Indication: BIPOLAR DISORDER
     Route: 048
  4. ABILIFY [Concomitant]
     Indication: BIPOLAR DISORDER
     Route: 048
  5. COLESTIPOL [Concomitant]
     Indication: CROHN^S DISEASE
     Route: 048
  6. LOMOTIL [Concomitant]
     Indication: CROHN^S DISEASE

REACTIONS (2)
  - Psoriasis [Not Recovered/Not Resolved]
  - Injection site erythema [Not Recovered/Not Resolved]
